FAERS Safety Report 4783477-1 (Version None)
Quarter: 2005Q3

REPORT INFORMATION
  Report Type: 
  Country: None (occurrence: None)
  Receive Date: 20050914
  Receipt Date: 20040908
  Transmission Date: 20060218
  Serious: Yes (Death)
  Sender: FDA-Public Use
  Company Number: 163-20785-04050623

PATIENT
  Age: 75 Year
  Sex: Male

DRUGS (1)
  1. THALOMID [Suspect]
     Indication: MYELODYSPLASTIC SYNDROME
     Dosage: 200 MG, DAILY, ORAL
     Route: 048
     Dates: start: 20040420, end: 20040401

REACTIONS (7)
  - CONSTIPATION [None]
  - DEATH [None]
  - DIZZINESS [None]
  - FATIGUE [None]
  - NERVE INJURY [None]
  - ORTHOSTATIC HYPOTENSION [None]
  - SOMNOLENCE [None]
